FAERS Safety Report 10018792 (Version 2)
Quarter: 2014Q1

REPORT INFORMATION
  Report Type: Spontaneous
  Country: IT (occurrence: IT)
  Receive Date: 20140318
  Receipt Date: 20140331
  Transmission Date: 20141002
  Serious: Yes (Hospitalization)
  Sender: FDA-Public Use
  Company Number: IT-TEVA-468069ISR

PATIENT
  Age: 66 Year
  Sex: Male

DRUGS (3)
  1. OXALIPLATIN [Suspect]
     Indication: ADENOCARCINOMA OF COLON
     Dosage: 70 MG/M2 DAILY;
     Dates: start: 20131209, end: 20140303
  2. ERBITUX [Concomitant]
     Indication: PRODUCT USED FOR UNKNOWN INDICATION
     Dosage: 250 MG/M2 DAILY;
  3. IRINOTECAN HYDROCHLORIDE TRIHYDRATE [Concomitant]
     Indication: PRODUCT USED FOR UNKNOWN INDICATION
     Dosage: 120 MG/M2 DAILY;

REACTIONS (6)
  - Hyperhidrosis [Recovered/Resolved]
  - Hyperpyrexia [Recovered/Resolved]
  - Nasopharyngitis [Recovered/Resolved]
  - Diarrhoea [Recovered/Resolved]
  - Anal inflammation [Recovered/Resolved]
  - Atrial fibrillation [Recovered/Resolved]
